FAERS Safety Report 4790461-0 (Version None)
Quarter: 2005Q4

REPORT INFORMATION
  Report Type: 
  Country: None (occurrence: None)
  Receive Date: 20051005
  Receipt Date: 20050916
  Transmission Date: 20060501
  Serious: Yes (Other)
  Sender: FDA-Public Use
  Company Number: USA0507103255

PATIENT
  Sex: Female

DRUGS (5)
  1. ZYPREXA [Suspect]
     Dosage: 7.5 MG DAY
  2. DICYCLOMINE [Concomitant]
  3. PROTONIX [Concomitant]
  4. VITAMIN E (HERBAL OIL NOS) [Concomitant]
  5. ACIDOPHILUS (LACTOBACILLUS ACIDOPHILUS) [Concomitant]

REACTIONS (15)
  - APPETITE DISORDER [None]
  - ARTHRALGIA [None]
  - ASTHENIA [None]
  - CATARACT [None]
  - COLD SWEAT [None]
  - DIARRHOEA [None]
  - EATING DISORDER [None]
  - EYE HAEMORRHAGE [None]
  - GASTRIC DISORDER [None]
  - MALAISE [None]
  - PAIN [None]
  - PAIN IN EXTREMITY [None]
  - PAIN IN JAW [None]
  - RETINAL DETACHMENT [None]
  - SCREAMING [None]
